FAERS Safety Report 8921328 (Version 1)
Quarter: 2012Q4

REPORT INFORMATION
  Report Type: 
  Country: US (occurrence: US)
  Receive Date: 20121122
  Receipt Date: 20121122
  Transmission Date: 20130627
  Serious: Yes (Other)
  Sender: FDA-Public Use
  Company Number: US-AMGEN-USASP2012074775

PATIENT
  Sex: Male

DRUGS (2)
  1. PROLIA [Suspect]
     Indication: BONE LOSS
  2. PROLIA [Suspect]
     Indication: PROSTATE CANCER

REACTIONS (1)
  - Metastases to bone [Unknown]
